FAERS Safety Report 4701169-1 (Version None)
Quarter: 2005Q2

REPORT INFORMATION
  Report Type: 
  Country: None (occurrence: None)
  Receive Date: 20050628
  Receipt Date: 20050324
  Transmission Date: 20051028
  Serious: Yes (Hospitalization)
  Sender: FDA-Public Use
  Company Number: DE-GLAXOSMITHKLINE-D0046281A

PATIENT
  Age: 21 Year
  Sex: Female

DRUGS (4)
  1. LAMICTAL [Suspect]
     Indication: EPILEPSY
     Route: 048
     Dates: start: 20050228, end: 20050323
  2. ERGENYL CHRONO [Suspect]
     Indication: EPILEPSY
     Route: 048
     Dates: start: 20050324
  3. CONTRACEPTIVE [Concomitant]
     Route: 065
  4. TAVOR [Concomitant]
     Dosage: .5MG PER DAY
     Route: 065
     Dates: start: 20050324

REACTIONS (8)
  - DEPRESSION [None]
  - DISORIENTATION [None]
  - DISTURBANCE IN ATTENTION [None]
  - FEAR [None]
  - MEMORY IMPAIRMENT [None]
  - NAUSEA [None]
  - SPEECH DISORDER [None]
  - TREMOR [None]
